FAERS Safety Report 14497767 (Version 1)
Quarter: 2018Q1

REPORT INFORMATION
  Report Type: Spontaneous
  Country: ZA (occurrence: ZA)
  Receive Date: 20180207
  Receipt Date: 20180207
  Transmission Date: 20180509
  Serious: Yes (Hospitalization)
  Sender: FDA-Public Use
  Company Number: ZA-TEVA-2018-ZA-852633

PATIENT
  Sex: Female

DRUGS (7)
  1. COPAXONE [Suspect]
     Active Substance: GLATIRAMER ACETATE
     Indication: MULTIPLE SCLEROSIS
     Dosage: 20 MILLIGRAM/MILLILITERS DAILY;
     Route: 058
     Dates: start: 20160525
  2. WELLBUTRIN [Concomitant]
     Active Substance: BUPROPION HYDROCHLORIDE
  3. EPILIM [Concomitant]
     Active Substance: VALPROATE SODIUM
  4. LORIEN [Concomitant]
     Active Substance: FLUOXETINE HYDROCHLORIDE
  5. DOPAQUEL [Concomitant]
     Active Substance: QUETIAPINE
  6. BIPERIDAN [Concomitant]
  7. RIVOTRIL [Concomitant]
     Active Substance: CLONAZEPAM

REACTIONS (1)
  - Breast conserving surgery [Unknown]
